FAERS Safety Report 21936463 (Version 1)
Quarter: 2023Q1

REPORT INFORMATION
  Report Type: Report from Study
  Country: US (occurrence: US)
  Receive Date: 20230201
  Receipt Date: 20230201
  Transmission Date: 20230418
  Serious: No
  Sender: FDA-Public Use
  Company Number: US-INCYTE CORPORATION-2021IN000668

PATIENT

DRUGS (1)
  1. PEMIGATINIB [Suspect]
     Active Substance: PEMIGATINIB
     Indication: Cholangiocarcinoma
     Dosage: 13.5 MILLIGRAM 14 DAYS ON AND 7 DAYS OFF
     Route: 065
     Dates: start: 20210113

REACTIONS (5)
  - Stress [Unknown]
  - Lip dry [Unknown]
  - Headache [Unknown]
  - Dysgeusia [Unknown]
  - Dry skin [Unknown]

NARRATIVE: CASE EVENT DATE: 20210113
